FAERS Safety Report 25347377 (Version 2)
Quarter: 2025Q2

REPORT INFORMATION
  Report Type: Spontaneous
  Country: US (occurrence: US)
  Receive Date: 20250522
  Receipt Date: 20250528
  Transmission Date: 20250716
  Serious: Yes (Life-Threatening, Other)
  Sender: PFIZER
  Company Number: US-PFIZER INC-PV202500060403

PATIENT
  Age: 26 Year
  Sex: Male

DRUGS (2)
  1. FENTANYL CITRATE [Suspect]
     Active Substance: FENTANYL CITRATE
  2. COCAINE [Suspect]
     Active Substance: COCAINE

REACTIONS (2)
  - Overdose [Unknown]
  - Cerebral infarction [Unknown]
